FAERS Safety Report 4560673-X (Version None)
Quarter: 2005Q1

REPORT INFORMATION
  Report Type: 
  Country: None (occurrence: None)
  Receive Date: 20050125
  Receipt Date: 20050125
  Transmission Date: 20050727
  Serious: Yes (Life-Threatening, Hospitalization, Other)
  Sender: FDA-Public Use
  Company Number: None

PATIENT
  Age: 73 Year
  Sex: Male
  Weight: 83.6 kg

DRUGS (19)
  1. CYTOXAN [Suspect]
     Indication: CHRONIC LYMPHOCYTIC LEUKAEMIA
     Dosage: 600 MG/M2 IV Q21D X 6
     Route: 042
     Dates: start: 20040721
  2. CYTOXAN [Suspect]
     Indication: CHRONIC LYMPHOCYTIC LEUKAEMIA
     Dosage: 600 MG/M2 IV Q21D X 6
     Route: 042
     Dates: start: 20040818
  3. CYTOXAN [Suspect]
     Indication: CHRONIC LYMPHOCYTIC LEUKAEMIA
     Dosage: 600 MG/M2 IV Q21D X 6
     Route: 042
     Dates: start: 20040908
  4. CYTOXAN [Suspect]
     Indication: CHRONIC LYMPHOCYTIC LEUKAEMIA
     Dosage: 600 MG/M2 IV Q21D X 6
     Route: 042
     Dates: start: 20041020
  5. CYTOXAN [Suspect]
     Indication: CHRONIC LYMPHOCYTIC LEUKAEMIA
     Dosage: 600 MG/M2 IV Q21D X 6
     Route: 042
     Dates: start: 20041110
  6. CYTOXAN [Suspect]
     Indication: CHRONIC LYMPHOCYTIC LEUKAEMIA
     Dosage: 600 MG/M2 IV Q21D X 6
     Route: 042
     Dates: start: 20041208
  7. RITUXAN [Suspect]
     Indication: CHRONIC LYMPHOCYTIC LEUKAEMIA
     Dosage: 375 MG/M2 IV Q 21 D X 6
     Route: 042
     Dates: start: 20040221, end: 20040223
  8. RITUXAN [Suspect]
     Indication: CHRONIC LYMPHOCYTIC LEUKAEMIA
     Dosage: 375 MG/M2 IV Q 21 D X 6
     Route: 042
     Dates: start: 20040721
  9. RITUXAN [Suspect]
     Indication: CHRONIC LYMPHOCYTIC LEUKAEMIA
     Dosage: 375 MG/M2 IV Q 21 D X 6
     Route: 042
     Dates: start: 20040818
  10. RITUXAN [Suspect]
     Indication: CHRONIC LYMPHOCYTIC LEUKAEMIA
     Dosage: 375 MG/M2 IV Q 21 D X 6
     Route: 042
     Dates: start: 20040908
  11. RITUXAN [Suspect]
     Indication: CHRONIC LYMPHOCYTIC LEUKAEMIA
     Dosage: 375 MG/M2 IV Q 21 D X 6
     Route: 042
     Dates: start: 20041020
  12. RITUXAN [Suspect]
     Indication: CHRONIC LYMPHOCYTIC LEUKAEMIA
     Dosage: 375 MG/M2 IV Q 21 D X 6
     Route: 042
     Dates: start: 20041110
  13. RITUXAN [Suspect]
     Indication: CHRONIC LYMPHOCYTIC LEUKAEMIA
     Dosage: 375 MG/M2 IV Q 21 D X 6
     Route: 042
     Dates: start: 20041208
  14. PENTOSTATIN [Suspect]
     Dosage: 4 MG/M2 IV Q 21 DAYS X 21
     Route: 042
     Dates: start: 20040721
  15. PENTOSTATIN [Suspect]
     Dosage: 4 MG/M2 IV Q 21 DAYS X 21
     Route: 042
     Dates: start: 20040818
  16. PENTOSTATIN [Suspect]
     Dosage: 4 MG/M2 IV Q 21 DAYS X 21
     Route: 042
     Dates: start: 20040908
  17. PENTOSTATIN [Suspect]
     Dosage: 4 MG/M2 IV Q 21 DAYS X 21
     Route: 042
     Dates: start: 20041020
  18. PENTOSTATIN [Suspect]
     Dosage: 4 MG/M2 IV Q 21 DAYS X 21
     Route: 042
     Dates: start: 20041110
  19. PENTOSTATIN [Suspect]
     Dosage: 4 MG/M2 IV Q 21 DAYS X 21
     Route: 042
     Dates: start: 20041208

REACTIONS (19)
  - BLOOD ALBUMIN DECREASED [None]
  - BLOOD ALKALINE PHOSPHATASE INCREASED [None]
  - BLOOD BILIRUBIN INCREASED [None]
  - BLOOD GLUCOSE INCREASED [None]
  - BLOOD SODIUM DECREASED [None]
  - BODY TEMPERATURE INCREASED [None]
  - BREATH SOUNDS DECREASED [None]
  - CREPITATIONS [None]
  - EXTRASYSTOLES [None]
  - FEBRILE NEUTROPENIA [None]
  - FEELING ABNORMAL [None]
  - HAEMATOCRIT DECREASED [None]
  - HAEMOGLOBIN DECREASED [None]
  - HEART RATE INCREASED [None]
  - INTERSTITIAL LUNG DISEASE [None]
  - MALAISE [None]
  - PNEUMONIA [None]
  - THROMBOCYTOPENIA [None]
  - WHITE BLOOD CELL COUNT DECREASED [None]
